FAERS Safety Report 4373268-8 (Version None)
Quarter: 2004Q2

REPORT INFORMATION
  Report Type: 
  Country: None (occurrence: None)
  Receive Date: 20040608
  Receipt Date: 20040524
  Transmission Date: 20050107
  Serious: Yes (Disabling)
  Sender: FDA-Public Use
  Company Number: CH-GLAXOSMITHKLINE-B0334249A

PATIENT
  Age: 60 Year
  Sex: Female

DRUGS (5)
  1. LAMICTAL [Suspect]
     Indication: BACK PAIN
     Dosage: 25MG PER DAY
     Route: 048
     Dates: start: 20040201, end: 20040201
  2. SAROTEN [Concomitant]
  3. DURAGESIC [Concomitant]
  4. TRAMAL [Concomitant]
  5. VOLTAREN [Concomitant]

REACTIONS (2)
  - BLISTER [None]
  - SCAR [None]
